FAERS Safety Report 20971606 (Version 2)
Quarter: 2024Q4

REPORT INFORMATION
  Report Type: Spontaneous
  Country: US (occurrence: US)
  Receive Date: 20220616
  Receipt Date: 20241016
  Transmission Date: 20250114
  Serious: No
  Sender: SANOFI AVENTIS
  Company Number: US-SA-SAC20220610000476

PATIENT
  Age: 16 Year
  Sex: Female
  Weight: 70.91 kg

DRUGS (3)
  1. DUPIXENT [Suspect]
     Active Substance: DUPILUMAB
     Indication: Dermatitis atopic
     Dosage: 300 MG, QOW
     Route: 058
     Dates: start: 201909, end: 20220527
  2. DUPIXENT [Suspect]
     Active Substance: DUPILUMAB
     Indication: Dermatitis atopic
     Dosage: 300 MG, QOW
     Route: 058
  3. RINVOQ [Concomitant]
     Active Substance: UPADACITINIB
     Dosage: UNK

REACTIONS (5)
  - Rebound atopic dermatitis [Not Recovered/Not Resolved]
  - Dermatitis atopic [Not Recovered/Not Resolved]
  - Dry skin [Not Recovered/Not Resolved]
  - Chapped lips [Not Recovered/Not Resolved]
  - Lip dry [Not Recovered/Not Resolved]

NARRATIVE: CASE EVENT DATE: 20220101
